FAERS Safety Report 21831723 (Version 1)
Quarter: 2023Q1

REPORT INFORMATION
  Report Type: Report from Study
  Country: US (occurrence: None)
  Receive Date: 20230106
  Receipt Date: 20230106
  Transmission Date: 20230418
  Serious: Yes (Death)
  Sender: FDA-Public Use
  Company Number: 2023A003550

PATIENT
  Age: 27201 Day
  Sex: Male

DRUGS (6)
  1. LYNPARZA [Suspect]
     Active Substance: OLAPARIB
     Indication: Hepatocellular carcinoma
     Route: 048
     Dates: start: 20221213
  2. MORPHINE [Concomitant]
     Active Substance: MORPHINE
     Route: 065
  3. MIDODRINE [Concomitant]
     Active Substance: MIDODRINE
     Route: 065
  4. TAMSULOSIN [Concomitant]
     Active Substance: TAMSULOSIN
     Route: 065
  5. LINZESS [Concomitant]
     Active Substance: LINACLOTIDE
     Route: 065
  6. PREDNISONE [Concomitant]
     Active Substance: PREDNISONE
     Route: 065

REACTIONS (1)
  - Death [Fatal]

NARRATIVE: CASE EVENT DATE: 20221228
